FAERS Safety Report 16169384 (Version 1)
Quarter: 2019Q2

REPORT INFORMATION
  Report Type: Spontaneous
  Country: US (occurrence: US)
  Receive Date: 20190305
  Receipt Date: 20190305
  Transmission Date: 20190711
  Serious: No
  Sender: FDA-Public Use
  Company Number: None

PATIENT

DRUGS (1)
  1. AIMOVIG [Suspect]
     Active Substance: ERENUMAB-AOOE
     Indication: MIGRAINE
     Dosage: ?          QUANTITY:70 MG/ML - MILLLIGRAMS PER MILLILITRES;?
     Dates: start: 20181023, end: 20190120

REACTIONS (3)
  - Diplopia [None]
  - Dizziness [None]
  - Insomnia [None]
